FAERS Safety Report 19452389 (Version 1)
Quarter: 2021Q2

REPORT INFORMATION
  Report Type: Report from Study
  Country: CA (occurrence: CA)
  Receive Date: 20210623
  Receipt Date: 20210623
  Transmission Date: 20210717
  Serious: Yes (Other)
  Sender: FDA-Public Use
  Company Number: NVSC2020CA204932

PATIENT
  Age: 52 Year
  Sex: Female

DRUGS (7)
  1. COSENTYX [Suspect]
     Active Substance: SECUKINUMAB
     Indication: PSORIATIC ARTHROPATHY
     Dosage: 300 MG, Q2W (0,1,2 AND 3)
     Route: 058
     Dates: start: 20200709
  2. COSENTYX [Suspect]
     Active Substance: SECUKINUMAB
     Dosage: UNK
     Route: 065
     Dates: start: 20210523
  3. METHOTREXATE. [Concomitant]
     Active Substance: METHOTREXATE
     Indication: PRODUCT USED FOR UNKNOWN INDICATION
     Dosage: UNK
     Route: 058
     Dates: start: 2019
  4. COSENTYX [Suspect]
     Active Substance: SECUKINUMAB
     Dosage: 150 MG (450 MG, FREQUENCY: 300MG ALTERNATING WITH 150MG Q2 WEEKS), Q2W
     Route: 058
  5. NAPROXEN. [Concomitant]
     Active Substance: NAPROXEN
     Indication: PRODUCT USED FOR UNKNOWN INDICATION
     Dosage: UNK
     Route: 065
  6. COSENTYX [Suspect]
     Active Substance: SECUKINUMAB
     Dosage: 300 MG, Q2W
     Route: 058
  7. LEFLUNOMIDE. [Concomitant]
     Active Substance: LEFLUNOMIDE
     Indication: PRODUCT USED FOR UNKNOWN INDICATION
     Dosage: UNK
     Route: 065

REACTIONS (14)
  - Nasopharyngitis [Unknown]
  - Photophobia [Unknown]
  - Asthenia [Unknown]
  - Neuropathy peripheral [Unknown]
  - Sinus disorder [Unknown]
  - Blood urine present [Unknown]
  - Headache [Unknown]
  - Flushing [Unknown]
  - Urinary tract infection [Unknown]
  - Fatigue [Unknown]
  - Hot flush [Unknown]
  - Neuralgia [Unknown]
  - Inappropriate schedule of product administration [Unknown]
  - Ear disorder [Unknown]

NARRATIVE: CASE EVENT DATE: 202007
